APPROVED DRUG PRODUCT: MUPIROCIN
Active Ingredient: MUPIROCIN
Strength: 2%
Dosage Form/Route: OINTMENT;TOPICAL
Application: A217943 | Product #001 | TE Code: AB
Applicant: ENCUBE ETHICALS PRIVATE LTD
Approved: May 13, 2025 | RLD: No | RS: No | Type: RX